FAERS Safety Report 22346052 (Version 1)
Quarter: 2023Q2

REPORT INFORMATION
  Report Type: Spontaneous
  Country: SI (occurrence: SI)
  Receive Date: 20230519
  Receipt Date: 20230519
  Transmission Date: 20230722
  Serious: Yes (Hospitalization)
  Sender: FDA-Public Use
  Company Number: None

PATIENT
  Age: 70 Year
  Sex: Male

DRUGS (22)
  1. ESBRIET [Suspect]
     Active Substance: PIRFENIDONE
     Indication: Idiopathic pulmonary fibrosis
     Dosage: 3X1
     Route: 048
     Dates: start: 20201012
  2. AZOPT [Concomitant]
     Active Substance: BRINZOLAMIDE
     Dosage: 3X1GTT IN BOTH EYES
  3. ENALAPRIL [Concomitant]
     Active Substance: ENALAPRIL
     Dosage: IN THE EVENINGS
  4. LACIDIPINE [Concomitant]
     Active Substance: LACIDIPINE
     Dosage: IN THE EVENINGS
  5. NITROLINGUAL [Concomitant]
     Active Substance: NITROGLYCERIN
     Indication: Chest pain
     Dosage: 2X UNDER THE TONGUE IF NECESSARY
  6. ASPIRIN [Concomitant]
     Active Substance: ASPIRIN
     Dosage: AT NOON
  7. IVABRADINE [Concomitant]
     Active Substance: IVABRADINE
     Dosage: 2X1
  8. ENAP HL [Concomitant]
     Dosage: IN THE MORNINGS
  9. TAFLUPROST [Concomitant]
     Active Substance: TAFLUPROST
     Dosage: 1 DROP IN BOTH EYES IN THE EVENINGS
  10. TRIMETAZIDINE DIHYDROCHLORIDE [Concomitant]
     Active Substance: TRIMETAZIDINE DIHYDROCHLORIDE
     Dosage: IN THE MORNINGS
  11. JARDIANCE [Concomitant]
     Active Substance: EMPAGLIFLOZIN
     Dosage: IN THE MORNINGS
  12. XARELTO [Concomitant]
     Active Substance: RIVAROXABAN
     Dosage: 2X1
  13. NEXIUM [Concomitant]
     Active Substance: ESOMEPRAZOLE MAGNESIUM
     Dosage: 2X/DAY 1 TABLET BEFORE MEALS
  14. FENOTEROL HYDROBROMIDE\IPRATROPIUM BROMIDE [Concomitant]
     Active Substance: FENOTEROL HYDROBROMIDE\IPRATROPIUM BROMIDE
     Indication: Dyspnoea
     Dosage: 2 INHALATIONS IF NECESSARY
  15. LORATADINE [Concomitant]
     Active Substance: LORATADINE
     Dosage: AT NOON
  16. CORYOL [Concomitant]
     Dosage: 25 MG/12 HOURS
  17. ACETAMINOPHEN [Concomitant]
     Active Substance: ACETAMINOPHEN
     Dosage: 1-2 TBL IF NECESSARY
  18. RANEXA [Concomitant]
     Active Substance: RANOLAZINE
     Dosage: 2X1
  19. TRAMADOL [Concomitant]
     Active Substance: TRAMADOL
     Dosage: 1-2 CAPS IF NECESSARY
  20. GLICLAZIDE [Concomitant]
     Active Substance: GLICLAZIDE
     Dosage: IN THE MORNINGS
  21. METFORMIN HYDROCHLORIDE [Concomitant]
     Active Substance: METFORMIN HYDROCHLORIDE
     Dosage: 3X1
  22. ISOSORBIDE MONONITRATE [Concomitant]
     Active Substance: ISOSORBIDE MONONITRATE
     Dosage: IN THE MORNINGS

REACTIONS (2)
  - Angina pectoris [Recovered/Resolved]
  - Arrhythmia [Recovering/Resolving]

NARRATIVE: CASE EVENT DATE: 20220601
